FAERS Safety Report 23222567 (Version 2)
Quarter: 2023Q4

REPORT INFORMATION
  Report Type: Spontaneous
  Country: DE (occurrence: DE)
  Receive Date: 20231123
  Receipt Date: 20231211
  Transmission Date: 20240109
  Serious: Yes (Hospitalization)
  Sender: FDA-Public Use
  Company Number: DE-BAXTER-2023BAX036211

PATIENT
  Age: 70 Year
  Sex: Male

DRUGS (4)
  1. OLIMEL [Suspect]
     Active Substance: AMINO ACIDS\DEXTROSE\SOYBEAN OIL
     Indication: Intradialytic parenteral nutrition
     Dosage: UNK
     Route: 065
  2. ELECTROLYTES NOS\MINERALS [Suspect]
     Active Substance: ELECTROLYTES NOS\MINERALS
     Indication: Intradialytic parenteral nutrition
     Dosage: UNK
     Route: 065
  3. VITAMINS [Suspect]
     Active Substance: VITAMINS
     Indication: Intradialytic parenteral nutrition
     Route: 065
  4. VITAMINS [Suspect]
     Active Substance: VITAMINS
     Indication: Intradialytic parenteral nutrition
     Route: 065

REACTIONS (3)
  - COVID-19 [Unknown]
  - Malaise [Recovered/Resolved]
  - Dysphagia [Unknown]

NARRATIVE: CASE EVENT DATE: 20231117
